FAERS Safety Report 15603026 (Version 1)
Quarter: 2018Q4

REPORT INFORMATION
  Report Type: Spontaneous
  Country: US (occurrence: US)
  Receive Date: 20181109
  Receipt Date: 20181109
  Transmission Date: 20190205
  Serious: Yes (Other)
  Sender: FDA-Public Use
  Company Number: US-SA-2018SA304218

PATIENT
  Age: 51 Year
  Sex: Female

DRUGS (3)
  1. METFORMIN HYDROCHLORIDE. [Suspect]
     Active Substance: METFORMIN HYDROCHLORIDE
  2. LANTUS [Suspect]
     Active Substance: INSULIN GLARGINE
     Indication: TYPE 2 DIABETES MELLITUS
     Dosage: 30 IU, QD
     Dates: start: 201707
  3. INSULIN LISPRO [Suspect]
     Active Substance: INSULIN LISPRO

REACTIONS (3)
  - Blood glucose abnormal [Unknown]
  - Dehydration [Unknown]
  - Device operational issue [Unknown]
